FAERS Safety Report 6338032-9 (Version None)
Quarter: 2009Q3

REPORT INFORMATION
  Report Type: 
  Country: None (occurrence: None)
  Receive Date: 20090902
  Receipt Date: 20090824
  Transmission Date: 20100115
  Serious: Yes (Hospitalization)
  Sender: FDA-Public Use
  Company Number: JP-PFIZER INC-2009231938

PATIENT
  Age: 82 Year

DRUGS (5)
  1. AMLODIPINE [Suspect]
     Dosage: UNK
  2. BLOPRESS [Suspect]
  3. MEVALOTIN [Suspect]
  4. ALTAT [Suspect]
  5. LASIX [Suspect]

REACTIONS (1)
  - PNEUMONIA [None]
